FAERS Safety Report 10152583 (Version 1)
Quarter: 2014Q2

REPORT INFORMATION
  Report Type: Spontaneous
  Country: US (occurrence: None)
  Receive Date: 20140502
  Receipt Date: 20140502
  Transmission Date: 20141212
  Serious: Yes (Death)
  Sender: FDA-Public Use
  Company Number: None

PATIENT
  Age: 76 Year
  Sex: Male
  Weight: 96 kg

DRUGS (1)
  1. CAUMADIN [Suspect]
     Indication: ANTICOAGULANT THERAPY
     Route: 048

REACTIONS (8)
  - Head injury [None]
  - Mental status changes [None]
  - International normalised ratio increased [None]
  - Haemorrhage intracranial [None]
  - Lethargy [None]
  - Brain natriuretic peptide increased [None]
  - Dyspnoea [None]
  - Aspiration [None]
